FAERS Safety Report 4346833-1 (Version None)
Quarter: 2004Q2

REPORT INFORMATION
  Report Type: 
  Country: None (occurrence: None)
  Receive Date: 20040426
  Receipt Date: 20031121
  Transmission Date: 20050107
  Serious: Yes (Other)
  Sender: FDA-Public Use
  Company Number: PHHO2003CA15079

PATIENT
  Age: 48 Year
  Sex: Female

DRUGS (5)
  1. ZELNORM [Suspect]
     Indication: IRRITABLE BOWEL SYNDROME
     Dosage: 6 MG, QD
     Route: 048
     Dates: start: 20031031, end: 20031106
  2. ZELNORM [Suspect]
     Dosage: 6 MG, QW
     Route: 048
     Dates: start: 20031107
  3. TIAZAC [Concomitant]
     Dosage: 300 UNK, UNK
  4. ASPIRIN [Concomitant]
     Dosage: 80 UNK, UNK
  5. CELEXA [Concomitant]
     Dosage: 10 MG, UNK

REACTIONS (5)
  - ABDOMINAL PAIN [None]
  - CONCOMITANT DISEASE PROGRESSION [None]
  - DIARRHOEA [None]
  - HAEMORRHOIDS [None]
  - RECTAL HAEMORRHAGE [None]
